FAERS Safety Report 6892522-9 (Version None)
Quarter: 2010Q3

REPORT INFORMATION
  Report Type: 
  Country: None (occurrence: None)
  Receive Date: 20100731
  Receipt Date: 20080620
  Transmission Date: 20110219
  Serious: Yes (Other)
  Sender: FDA-Public Use
  Company Number: US-PFIZER INC-2008026939

PATIENT
  Sex: Female
  Weight: 61.2 kg

DRUGS (6)
  1. AMLODIPINE [Suspect]
     Indication: HYPERTENSION
     Dates: start: 20080301
  2. LIPITOR [Concomitant]
  3. PLAVIX [Concomitant]
  4. LASIX [Concomitant]
  5. ZYPREXA [Concomitant]
  6. ZYRTEC [Concomitant]

REACTIONS (6)
  - FEELING ABNORMAL [None]
  - FLUSHING [None]
  - HYPERTENSION [None]
  - NAUSEA [None]
  - PRESYNCOPE [None]
  - URTICARIA [None]
